FAERS Safety Report 20467914 (Version 2)
Quarter: 2022Q2

REPORT INFORMATION
  Report Type: Report from Study
  Country: CO (occurrence: CO)
  Receive Date: 20220214
  Receipt Date: 20220503
  Transmission Date: 20220720
  Serious: Yes (Other)
  Sender: FDA-Public Use
  Company Number: CO-ABBVIE-22K-036-4277445-00

PATIENT
  Sex: Female
  Weight: 75 kg

DRUGS (5)
  1. HUMIRA [Suspect]
     Active Substance: ADALIMUMAB
     Indication: Uveitis
     Route: 058
     Dates: start: 20181211
  2. METHOTREXATE [Concomitant]
     Active Substance: METHOTREXATE
     Indication: Inflammation
     Dosage: ON SATURDAY AND SUNDAY
     Route: 048
  3. METHOTREXATE [Concomitant]
     Active Substance: METHOTREXATE
     Indication: Uveitis
  4. FOLIC ACID [Concomitant]
     Active Substance: FOLIC ACID
     Indication: Inflammation
     Dosage: EVERY 24 HOURS FROM MONDAY TO FRIDAY
     Route: 048
     Dates: end: 2018
  5. FOLIC ACID [Concomitant]
     Active Substance: FOLIC ACID
     Indication: Uveitis

REACTIONS (16)
  - Amnesia [Not Recovered/Not Resolved]
  - Memory impairment [Not Recovered/Not Resolved]
  - Hormone level abnormal [Not Recovered/Not Resolved]
  - Emotional distress [Not Recovered/Not Resolved]
  - Crying [Not Recovered/Not Resolved]
  - Eye inflammation [Not Recovered/Not Resolved]
  - Unevaluable event [Not Recovered/Not Resolved]
  - Asthenia [Recovering/Resolving]
  - Discouragement [Recovering/Resolving]
  - Chills [Recovering/Resolving]
  - Mood altered [Recovering/Resolving]
  - Headache [Not Recovered/Not Resolved]
  - Tenderness [Not Recovered/Not Resolved]
  - Menopause [Unknown]
  - Drug hypersensitivity [Recovering/Resolving]
  - Heavy menstrual bleeding [Unknown]

NARRATIVE: CASE EVENT DATE: 20190101
